FAERS Safety Report 11814046 (Version 1)
Quarter: 2015Q4

REPORT INFORMATION
  Report Type: Spontaneous
  Country: SE (occurrence: SE)
  Receive Date: 20151209
  Receipt Date: 20151209
  Transmission Date: 20160305
  Serious: Yes (Other)
  Sender: FDA-Public Use
  Company Number: SE-PFIZER INC-2015421017

PATIENT
  Age: 69 Year
  Sex: Female

DRUGS (3)
  1. CHAMPIX [Suspect]
     Active Substance: VARENICLINE TARTRATE
     Indication: SMOKING CESSATION THERAPY
     Dosage: UNK
     Dates: end: 20130530
  2. LEVAXIN [Interacting]
     Active Substance: LEVOTHYROXINE SODIUM
     Dosage: UNK
  3. CHAMPIX [Interacting]
     Active Substance: VARENICLINE TARTRATE
     Indication: NICOTINE DEPENDENCE

REACTIONS (5)
  - Basedow^s disease [Unknown]
  - Endocrine ophthalmopathy [Unknown]
  - Abdominal discomfort [Unknown]
  - Drug interaction [Unknown]
  - Disease recurrence [Unknown]
